FAERS Safety Report 16883779 (Version 1)
Quarter: 2019Q4

REPORT INFORMATION
  Report Type: Spontaneous
  Country: US (occurrence: US)
  Receive Date: 20191004
  Receipt Date: 20191004
  Transmission Date: 20200122
  Serious: No
  Sender: FDA-Public Use
  Company Number: US-TEVA-2019-US-1116662

PATIENT
  Age: 83 Year
  Sex: Female

DRUGS (1)
  1. QVAR REDIHALER [Suspect]
     Active Substance: BECLOMETHASONE DIPROPIONATE
     Indication: PRODUCT USED FOR UNKNOWN INDICATION
     Dosage: SHE USES 1 PUFF TWICE A DAY, BUT DURING OTHER TIMES OF THE YEAR SHE NEEDS TO USE 2 PUFFS TWICE A DAY
     Route: 055

REACTIONS (2)
  - Product substitution issue [Unknown]
  - Dry mouth [Unknown]
